FAERS Safety Report 17396992 (Version 4)
Quarter: 2022Q1

REPORT INFORMATION
  Report Type: Report from Study
  Country: US (occurrence: US)
  Receive Date: 20200210
  Receipt Date: 20220117
  Transmission Date: 20220423
  Serious: Yes (Other)
  Sender: FDA-Public Use
  Company Number: US-TAKEDA-2020TUS005766

PATIENT
  Sex: Female
  Weight: 58.957 kg

DRUGS (6)
  1. VEDOLIZUMAB [Suspect]
     Active Substance: VEDOLIZUMAB
     Indication: Crohn^s disease
     Dosage: 300 MILLIGRAM
     Route: 042
     Dates: start: 201710, end: 201909
  2. VEDOLIZUMAB [Suspect]
     Active Substance: VEDOLIZUMAB
     Dosage: 300 MILLIGRAM, Q6WEEKS
     Route: 042
  3. TOPIRAMATE [Concomitant]
     Active Substance: TOPIRAMATE
     Dosage: 50 MILLIGRAM, BID
     Route: 048
  4. PHENOBARBITAL [Concomitant]
     Active Substance: PHENOBARBITAL
     Dosage: 64.8 MILLIGRAM
  5. DILANTIN                           /00017401/ [Concomitant]
     Dosage: 100 MILLIGRAM, BID
     Route: 048
  6. NYSTATIN [Concomitant]
     Active Substance: NYSTATIN
     Dosage: UNK

REACTIONS (7)
  - Anorectal infection [Recovered/Resolved]
  - Anal fistula [Recovered/Resolved]
  - Rectal abscess [Recovered/Resolved]
  - Hand fracture [Unknown]
  - Perineal rash [Recovered/Resolved]
  - Wrist fracture [Unknown]
  - Off label use [Unknown]
